FAERS Safety Report 23958808 (Version 1)
Quarter: 2024Q2

REPORT INFORMATION
  Report Type: Spontaneous
  Country: JP (occurrence: JP)
  Receive Date: 20240611
  Receipt Date: 20240611
  Transmission Date: 20240716
  Serious: Yes (Life-Threatening, Hospitalization, Other)
  Sender: FDA-Public Use
  Company Number: JP-BRISTOL-MYERS SQUIBB COMPANY-2024-059295

PATIENT
  Age: 93 Year
  Sex: Female
  Weight: 62 kg

DRUGS (12)
  1. ELIQUIS [Suspect]
     Active Substance: APIXABAN
     Indication: Thrombosis prophylaxis
     Route: 048
  2. ELIQUIS [Suspect]
     Active Substance: APIXABAN
     Indication: Cerebrovascular accident prophylaxis
     Route: 048
  3. FUROSEMIDE [Concomitant]
     Active Substance: FUROSEMIDE
     Indication: Cardiomegaly
     Dosage: AFTER BREAKFAST (ONGOING)
     Route: 048
  4. ENALAPRIL MALEATE [Concomitant]
     Active Substance: ENALAPRIL MALEATE
     Indication: Cardiomegaly
     Dosage: AFTER BREAKFAST
     Route: 048
  5. AMLODIPINE BESYLATE\ATORVASTATIN CALCIUM [Concomitant]
     Active Substance: AMLODIPINE BESYLATE\ATORVASTATIN CALCIUM
     Indication: Hypertension
     Dosage: COMBINATION TABLETS NO.2, AFTER BREAKFAST (ONGOING)
     Route: 048
  6. AMLODIPINE BESYLATE\ATORVASTATIN CALCIUM [Concomitant]
     Active Substance: AMLODIPINE BESYLATE\ATORVASTATIN CALCIUM
     Indication: Dyslipidaemia
  7. LANSOPRAZOLE [Concomitant]
     Active Substance: LANSOPRAZOLE
     Indication: Product used for unknown indication
     Dosage: AFTER BREAKFAST (ONGOING)
     Route: 048
  8. SPIRONOLACTONE [Concomitant]
     Active Substance: SPIRONOLACTONE
     Indication: Cardiomegaly
     Dosage: AFTER BREAKFAST
     Route: 048
  9. MAGNESIUM OXIDE [Concomitant]
     Active Substance: MAGNESIUM OXIDE
     Indication: Product used for unknown indication
     Dosage: THERE ARE DISCREPANCIES IN THE REPORT; ONCE DAILY AFTER BREAKFAST OR TWICE, DAILY (ONGOING)
     Route: 048
  10. BISOPROLOL FUMARATE [Concomitant]
     Active Substance: BISOPROLOL FUMARATE
     Indication: Arrhythmia
     Dosage: THERE ARE DISCREPANCIES IN THE REPORT ; AT 0.625, ONCE DAILY OR AT 1.25 MG, ONCE DAILY (ONGOING)
     Route: 048
  11. REBAMIPIDE [Concomitant]
     Active Substance: REBAMIPIDE
     Indication: Product used for unknown indication
     Dosage: AFTER EACH MEALS (ONGOING)
     Route: 048
  12. HEPARINOID [Concomitant]
     Indication: Product used for unknown indication

REACTIONS (4)
  - Femur fracture [Unknown]
  - Shock haemorrhagic [Unknown]
  - Fall [Unknown]
  - Overdose [Unknown]

NARRATIVE: CASE EVENT DATE: 20240409
